FAERS Safety Report 6235543-1 (Version None)
Quarter: 2009Q2

REPORT INFORMATION
  Report Type: 
  Country: None (occurrence: None)
  Receive Date: 20090618
  Receipt Date: 20090108
  Transmission Date: 20091009
  Serious: No
  Sender: FDA-Public Use
  Company Number: US-ASTRAZENECA-2008UW26047

PATIENT
  Age: 63 Year
  Sex: Female
  Weight: 89.4 kg

DRUGS (2)
  1. RHINOCORT [Suspect]
     Route: 045
     Dates: end: 20080101
  2. RHINOCORT [Suspect]
     Dosage: 32 UG 120 METER SPRAY/UNIT, ONE DAILY
     Route: 055
     Dates: start: 20081104

REACTIONS (2)
  - EPISTAXIS [None]
  - INJURY [None]
